FAERS Safety Report 5289788-8 (Version None)
Quarter: 2007Q2

REPORT INFORMATION
  Report Type: 
  Country: None (occurrence: None)
  Receive Date: 20070406
  Receipt Date: 20070329
  Transmission Date: 20071010
  Serious: Yes (Hospitalization)
  Sender: FDA-Public Use
  Company Number: IT-PFIZER INC-2006109543

PATIENT
  Sex: Male
  Weight: 65 kg

DRUGS (8)
  1. SU-011,248 [Suspect]
     Indication: GASTROINTESTINAL STROMAL TUMOUR
     Route: 048
     Dates: start: 20060829, end: 20060905
  2. TRIATEC [Concomitant]
     Route: 048
  3. FRAXIPARINA [Concomitant]
     Route: 058
     Dates: start: 20060817, end: 20060828
  4. CREON [Concomitant]
     Route: 048
     Dates: start: 20040701
  5. OMNIC [Concomitant]
     Route: 048
     Dates: start: 20040101
  6. CIPROFLOXACIN HYDROCHLORIDE [Concomitant]
     Route: 048
     Dates: start: 20060828, end: 20060905
  7. DELTACORTENE [Concomitant]
     Route: 048
     Dates: start: 20060828
  8. LIMPIDEX [Concomitant]
     Route: 048
     Dates: start: 20060817

REACTIONS (2)
  - ABDOMINAL PAIN [None]
  - INTESTINAL OBSTRUCTION [None]
